FAERS Safety Report 6810433-1 (Version None)
Quarter: 2010Q2

REPORT INFORMATION
  Report Type: 
  Country: None (occurrence: None)
  Receive Date: 20100630
  Receipt Date: 20100624
  Transmission Date: 20101027
  Serious: Yes (Hospitalization)
  Sender: FDA-Public Use
  Company Number: SE-ABBOTT-10P-150-0652471-00

PATIENT
  Sex: Male

DRUGS (5)
  1. CLARITHROMYCIN [Suspect]
     Indication: ATYPICAL MYCOBACTERIAL INFECTION
  2. MYAMBUTOL [Suspect]
     Indication: ATYPICAL MYCOBACTERIAL INFECTION
  3. TIBINIDE [Suspect]
     Indication: ATYPICAL MYCOBACTERIAL INFECTION
  4. MYAMBUTOL [Concomitant]
     Indication: DRUG USE FOR UNKNOWN INDICATION
  5. TIBINIDE [Concomitant]
     Indication: DRUG USE FOR UNKNOWN INDICATION

REACTIONS (3)
  - ASCITES [None]
  - DYSPNOEA [None]
  - HEPATIC FAILURE [None]
